FAERS Safety Report 4778771-4 (Version None)
Quarter: 2005Q3

REPORT INFORMATION
  Report Type: 
  Country: None (occurrence: None)
  Receive Date: 20050922
  Receipt Date: 20050908
  Transmission Date: 20060218
  Serious: No
  Sender: FDA-Public Use
  Company Number: MK200509-0080-2

PATIENT
  Sex: Male

DRUGS (1)
  1. OPTIRAY 300 [Suspect]
     Indication: SCAN BRAIN
     Dosage: 40 ML, ONE TIME, IV
     Route: 042
     Dates: start: 20050711, end: 20050711

REACTIONS (1)
  - ANAPHYLACTIC REACTION [None]
